FAERS Safety Report 8179759-6 (Version None)
Quarter: 2012Q1

REPORT INFORMATION
  Report Type: 
  Country: None (occurrence: None)
  Receive Date: 20120302
  Receipt Date: 20120216
  Transmission Date: 20120608
  Serious: Yes (Death, Other)
  Sender: FDA-Public Use
  Company Number: BR-AMGEN-BRACT2012000843

PATIENT
  Sex: Female

DRUGS (2)
  1. ENBREL [Suspect]
     Indication: RHEUMATOID ARTHRITIS
     Route: 058
  2. ENBREL [Suspect]
     Dosage: UNK
     Route: 058

REACTIONS (6)
  - SWELLING [None]
  - REFLUX GASTRITIS [None]
  - HERNIA [None]
  - RESPIRATORY ARREST [None]
  - DEHYDRATION [None]
  - PRECANCEROUS CELLS PRESENT [None]
